FAERS Safety Report 23930015 (Version 1)
Quarter: 2024Q2

REPORT INFORMATION
  Report Type: Report from Study
  Country: US (occurrence: US)
  Receive Date: 20240601
  Receipt Date: 20240601
  Transmission Date: 20240715
  Serious: Yes (Other)
  Sender: FDA-Public Use
  Company Number: US-AUROBINDO-AUR-APL-2024-025689

PATIENT
  Age: 26 Year
  Sex: Female

DRUGS (18)
  1. CYCLOPHOSPHAMIDE [Suspect]
     Active Substance: CYCLOPHOSPHAMIDE
     Indication: B-cell lymphoma
     Dosage: UNK, CYCLICAL AT 31 WEEKS
     Route: 065
  2. CYCLOPHOSPHAMIDE [Suspect]
     Active Substance: CYCLOPHOSPHAMIDE
     Dosage: UNK, CYCLICAL AT 36 WEEKS AND 3 DAYS, SHE COMPLETED 2 CYCLES OF CHEMOTHERAPY
     Route: 065
  3. CYCLOPHOSPHAMIDE [Suspect]
     Active Substance: CYCLOPHOSPHAMIDE
     Dosage: UNK, CYCLICALAFTER DELIVERY, SHE RESUMED CHEMOTHERAPY WITH C3 DAREPOCH
     Route: 065
  4. PREDNISONE [Suspect]
     Active Substance: PREDNISONE
     Indication: B-cell lymphoma
     Dosage: UNK, CYCLICAL  AT 31 WEEKS
     Route: 065
  5. PREDNISONE [Suspect]
     Active Substance: PREDNISONE
     Dosage: UNK, CYCLICAL  AT 36 WEEKS AND 3 DAYS, SHE COMPLETED 2 CYCLES OF CHEMOTHERAPY
     Route: 065
  6. PREDNISONE [Suspect]
     Active Substance: PREDNISONE
     Dosage: UNK, CYCLICAL AFTER DELIVERY, SHE RESUMED CHEMOTHERAPY WITH C3 DAREPOCH
     Route: 065
  7. VINCRISTINE SULFATE [Suspect]
     Active Substance: VINCRISTINE SULFATE
     Indication: B-cell lymphoma
     Dosage: UNK, CYCLICAL  AT 31 WEEKS
     Route: 065
  8. VINCRISTINE SULFATE [Suspect]
     Active Substance: VINCRISTINE SULFATE
     Dosage: UNK, CYCLICAL AT 36 WEEKS AND 3 DAYS, SHE COMPLETED 2 CYCLES OF CHEMOTHERAPY
     Route: 065
  9. VINCRISTINE SULFATE [Suspect]
     Active Substance: VINCRISTINE SULFATE
     Dosage: UNK, CYCLICAL AFTER DELIVERY, SHE RESUMED CHEMOTHERAPY WITH C3 DAREPOCH
     Route: 065
  10. DOXORUBICIN [Suspect]
     Active Substance: DOXORUBICIN
     Indication: B-cell lymphoma
     Dosage: UNK  AT 31 WEEKS
     Route: 065
  11. DOXORUBICIN [Suspect]
     Active Substance: DOXORUBICIN
     Dosage: UNK  AT 36 WEEKS AND 3 DAYS, SHE COMPLETED 2 CYCLES OF CHEMOTHERAPY
     Route: 065
  12. DOXORUBICIN [Suspect]
     Active Substance: DOXORUBICIN
     Dosage: UNK  AFTER DELIVERY, SHE RESUMED CHEMOTHERAPY WITH C3 DAREPOCH
     Route: 065
  13. ETOPOSIDE [Suspect]
     Active Substance: ETOPOSIDE
     Indication: B-cell lymphoma
     Dosage: UNK, CYCLICAL  AT 31 WEEKS
     Route: 065
  14. ETOPOSIDE [Suspect]
     Active Substance: ETOPOSIDE
     Dosage: UNK, CYCLICAL AT 36 WEEKS AND 3 DAYS, SHE COMPLETED 2 CYCLES OF CHEMOTHERAPY
     Route: 065
  15. ETOPOSIDE [Suspect]
     Active Substance: ETOPOSIDE
     Dosage: UNK, CYCLICAL AFTER DELIVERY, SHE RESUMED CHEMOTHERAPY WITH C3 DAREPOCH
     Route: 065
  16. RITUXIMAB [Suspect]
     Active Substance: RITUXIMAB
     Indication: B-cell lymphoma
     Dosage: UNK, CYCLICAL  AT 31 WEEKS
     Route: 065
  17. RITUXIMAB [Suspect]
     Active Substance: RITUXIMAB
     Dosage: UNK, CYCLICAL  AT 36 WEEKS AND 3 DAYS, SHE COMPLETED 2 CYCLES OF CHEMOTHERAPY
     Route: 065
  18. RITUXIMAB [Suspect]
     Active Substance: RITUXIMAB
     Dosage: UNK, CYCLICAL  AFTER DELIVERY, SHE RESUMED CHEMOTHERAPY WITH C3 DAREPOCH
     Route: 065

REACTIONS (4)
  - Neuropathy peripheral [Recovered/Resolved]
  - Mucosal inflammation [Not Recovered/Not Resolved]
  - Headache [Not Recovered/Not Resolved]
  - Exposure during pregnancy [Unknown]
